FAERS Safety Report 7248986 (Version 4)
Quarter: 2012Q4

REPORT INFORMATION
  Report Type: 
  Country: US (occurrence: US)
  Receive Date: 20100119
  Receipt Date: 20120829
  Transmission Date: 20130627
  Serious: Yes (Life-Threatening, Hospitalization)
  Sender: FDA-Public Use
  Company Number: US-BAYER-201010766NA

PATIENT
  Age: 44 Year
  Sex: Female
  Weight: 54.42 kg

DRUGS (7)
  1. YASMIN [Suspect]
     Indication: MENSTRUAL CYCLE MANAGEMENT
     Dosage: UNK
     Route: 048
     Dates: start: 200208, end: 20050911
  2. YASMIN [Suspect]
     Indication: PREMENSTRUAL SYNDROME
     Dosage: UNK
     Dates: start: 200208, end: 20050911
  3. YAZ [Suspect]
     Indication: PRODUCT USED FOR UNKNOWN INDICATION
     Dosage: UNK
     Route: 048
  4. SARAFEM [Concomitant]
     Indication: PREMENSTRUAL SYNDROME
     Dosage: 20 mg, UNK
     Route: 048
     Dates: start: 2002
  5. NASONEX [Concomitant]
     Indication: MULTIPLE ALLERGIES
     Dosage: UNK UNK, PRN
     Dates: start: 200501, end: 200512
  6. FERROUS SULFATE [Concomitant]
     Dosage: 325 mg, UNK
     Route: 048
  7. MULTI-VITAMIN [Concomitant]
     Dosage: UNK
     Dates: start: 20050913

REACTIONS (7)
  - Pulmonary embolism [Unknown]
  - Pain [Unknown]
  - Hypoaesthesia [Unknown]
  - Swelling [Unknown]
  - Anxiety [Unknown]
  - Chest pain [Unknown]
  - Dyspnoea [Unknown]
